FAERS Safety Report 7652407-7 (Version None)
Quarter: 2011Q3

REPORT INFORMATION
  Report Type: 
  Country: None (occurrence: None)
  Receive Date: 20110722
  Receipt Date: 20101223
  Transmission Date: 20111222
  Serious: Yes (Hospitalization)
  Sender: FDA-Public Use
  Company Number: UTC-003703

PATIENT
  Age: 45 Year
  Sex: Female
  Weight: 104.5 kg

DRUGS (1)
  1. REMODULIN [Suspect]
     Indication: PULMONARY HYPERTENSION
     Dosage: 26.928 UG/KG (0.0187 UG/KG, 1 IN 1 MIN), INTRAVENOUS
     Route: 042
     Dates: start: 20091202

REACTIONS (3)
  - THROMBOSIS [None]
  - CATHETER SITE INFECTION [None]
  - CHEST DISCOMFORT [None]
